FAERS Safety Report 7134841-7 (Version None)
Quarter: 2010Q4

REPORT INFORMATION
  Report Type: 
  Country: None (occurrence: None)
  Receive Date: 20101130
  Receipt Date: 20101130
  Transmission Date: 20110411
  Serious: Yes (Other)
  Sender: FDA-Public Use
  Company Number: None

PATIENT
  Sex: Female
  Weight: 72.5755 kg

DRUGS (1)
  1. DARVON [Suspect]
     Indication: HEAD INJURY
     Dosage: 3 X'S DAILEY PO
     Route: 048
     Dates: start: 19980215, end: 20101119

REACTIONS (1)
  - DRUG WITHDRAWAL SYNDROME [None]
